FAERS Safety Report 22588136 (Version 1)
Quarter: 2023Q2

REPORT INFORMATION
  Report Type: Spontaneous
  Country: CA (occurrence: CA)
  Receive Date: 20230612
  Receipt Date: 20230612
  Transmission Date: 20230722
  Serious: Yes (Other)
  Sender: FDA-Public Use
  Company Number: CA-JNJFOC-20230620026

PATIENT
  Age: 57 Year
  Sex: Male
  Weight: 68 kg

DRUGS (4)
  1. REMICADE [Suspect]
     Active Substance: INFLIXIMAB
     Indication: Colitis ulcerative
     Route: 041
  2. INFLIXIMAB [Suspect]
     Active Substance: INFLIXIMAB
     Indication: Colitis ulcerative
     Route: 042
  3. PENTASA [Concomitant]
     Active Substance: MESALAMINE
  4. PREDNISONE [Concomitant]
     Active Substance: PREDNISONE

REACTIONS (6)
  - Cataract [Not Recovered/Not Resolved]
  - Drug level abnormal [Not Recovered/Not Resolved]
  - Tuberculosis [Not Recovered/Not Resolved]
  - Herpes zoster [Not Recovered/Not Resolved]
  - Intentional product use issue [Not Recovered/Not Resolved]
  - Off label use [Not Recovered/Not Resolved]
